FAERS Safety Report 4405296-8 (Version None)
Quarter: 2004Q3

REPORT INFORMATION
  Report Type: 
  Country: None (occurrence: None)
  Receive Date: 20040716
  Receipt Date: 20040706
  Transmission Date: 20050211
  Serious: Yes (Life-Threatening)
  Sender: FDA-Public Use
  Company Number: 04H-087-0265070-00

PATIENT
  Sex: Male

DRUGS (1)
  1. PRECEDEX [Suspect]

REACTIONS (1)
  - ECZEMA [None]
